FAERS Safety Report 8565902 (Version 2)
Quarter: 2012Q4

REPORT INFORMATION
  Report Type: Spontaneous
  Country: AT (occurrence: None)
  Receive Date: 20120510
  Receipt Date: 20120928
  Transmission Date: 20130627
  Serious: Yes (Other)
  Sender: FDA-Public Use
  Company Number: 2012NA000043

PATIENT
  Age: 21 Year
  Sex: Female
  Weight: 65 kg

DRUGS (10)
  1. DICLOFENAC SODIUM [Suspect]
     Indication: ANAESTHESIA PROCEDURE
  2. MIDAZOLAM [Suspect]
     Indication: ANAESTHESIA PROCEDURE
     Route: 048
  3. PROPOFOL [Suspect]
     Indication: ANAESTHESIA PROCEDURE
     Route: 042
  4. PROPOFOL [Suspect]
     Indication: ANAESTHESIA PROCEDURE
     Route: 040
  5. FENTANYL [Suspect]
     Indication: ANAESTHESIA PROCEDURE
  6. ROCURONIUM BROMIDE [Suspect]
     Indication: ANAESTHESIA PROCEDURE
  7. NITROUS OXIDE [Suspect]
     Indication: ANAESTHESIA PROCEDURE
  8. RANITIDINE HYDROCHLORIDE [Suspect]
     Indication: ANAESTHESIA PROCEDURE
  9. NEOSTIGMINE [Suspect]
     Indication: ANAESTHESIA PROCEDURE
  10. GLYCOPYRROLATE [Suspect]
     Indication: ANAESTHESIA PROCEDURE

REACTIONS (1)
  - ATRIOVENTRICULAR DISSOCIATION [None]
